FAERS Safety Report 21299010 (Version 1)
Quarter: 2022Q3

REPORT INFORMATION
  Report Type: Spontaneous
  Country: US (occurrence: None)
  Receive Date: 20220905
  Receipt Date: 20220905
  Transmission Date: 20221026
  Serious: Yes (Death)
  Sender: FDA-Public Use
  Company Number: None

PATIENT
  Sex: Male

DRUGS (3)
  1. ESBRIET [Suspect]
     Active Substance: PIRFENIDONE
     Indication: Idiopathic pulmonary fibrosis
     Dosage: FREQUENCY : AS DIRECTED;?
     Route: 048
     Dates: start: 20210129
  2. MIDODRINE TAB [Concomitant]
  3. PIRFENIDONE [Concomitant]
     Active Substance: PIRFENIDONE

REACTIONS (1)
  - Death [None]
